FAERS Safety Report 5788557-X (Version None)
Quarter: 2008Q2

REPORT INFORMATION
  Report Type: 
  Country: None (occurrence: None)
  Receive Date: 20080626
  Receipt Date: 20080613
  Transmission Date: 20081010
  Serious: Yes (Hospitalization)
  Sender: FDA-Public Use
  Company Number: DE-ELI_LILLY_AND_COMPANY-DE200806003244

PATIENT
  Age: 34 Year
  Sex: Male

DRUGS (5)
  1. ZYPREXA [Suspect]
     Indication: SCHIZOPHRENIA
     Dosage: 15 MG, UNK
     Route: 048
     Dates: start: 20080310, end: 20080319
  2. ZYPREXA [Suspect]
     Dosage: 20 MG, UNK
     Route: 048
     Dates: start: 20080320, end: 20080327
  3. ZYPREXA [Suspect]
     Dosage: 15 MG, UNK
     Route: 048
     Dates: start: 20080328, end: 20080410
  4. SOLIAN [Concomitant]
     Dosage: 800 MG, UNK
     Route: 048
     Dates: start: 20080312, end: 20080410
  5. LORAZEPAM [Concomitant]
     Dosage: 1.5 MEQ, UNK
     Route: 048
     Dates: start: 20080311, end: 20080319

REACTIONS (3)
  - ABDOMINAL DISCOMFORT [None]
  - FATIGUE [None]
  - LIVER FUNCTION TEST ABNORMAL [None]
